FAERS Safety Report 18312524 (Version 1)
Quarter: 2020Q3

REPORT INFORMATION
  Report Type: Spontaneous
  Country: NG (occurrence: NG)
  Receive Date: 20200925
  Receipt Date: 20200925
  Transmission Date: 20201103
  Serious: Yes (Death)
  Sender: FDA-Public Use
  Company Number: NG-PFIZER INC-2020370794

PATIENT
  Age: 42 Year
  Sex: Female

DRUGS (1)
  1. IBRANCE [Suspect]
     Active Substance: PALBOCICLIB
     Dosage: 125 MG, DAILY
     Route: 048
     Dates: start: 20200915, end: 20200919

REACTIONS (1)
  - Death [Fatal]

NARRATIVE: CASE EVENT DATE: 20200919
